FAERS Safety Report 5046973-8 (Version None)
Quarter: 2006Q2

REPORT INFORMATION
  Report Type: 
  Country: None (occurrence: None)
  Receive Date: 20060630
  Receipt Date: 20060619
  Transmission Date: 20061013
  Serious: Yes (Life-Threatening, Hospitalization, Disabling)
  Sender: FDA-Public Use
  Company Number: 2006043082

PATIENT
  Age: 70 Year
  Sex: Male

DRUGS (6)
  1. NIFEDIPINE [Suspect]
     Indication: HYPERTENSION
     Dosage: 60 MG ORAL
     Route: 048
     Dates: start: 20050127, end: 20050504
  2. MEXITIL [Suspect]
     Indication: VENTRICULAR EXTRASYSTOLES
     Dosage: 100 MG (DAILY)ORAL
     Route: 048
     Dates: start: 20050127, end: 20050504
  3. PLETAL [Concomitant]
  4. ALPRAZOLAM [Concomitant]
  5. SIGMART (NICORANDIL) [Concomitant]
  6. FERROMIA (FERROUS CITRATE) [Concomitant]

REACTIONS (8)
  - ANAEMIA [None]
  - ARTERIOSCLEROSIS OBLITERANS [None]
  - CARDIAC FAILURE [None]
  - DIALYSIS [None]
  - INSOMNIA [None]
  - RENAL FAILURE [None]
  - TOXIC EPIDERMAL NECROLYSIS [None]
  - VENTRICULAR EXTRASYSTOLES [None]
